FAERS Safety Report 18279580 (Version 1)
Quarter: 2020Q3

REPORT INFORMATION
  Report Type: Spontaneous
  Country: CN (occurrence: CN)
  Receive Date: 20200917
  Receipt Date: 20200917
  Transmission Date: 20201104
  Serious: Yes (Life-Threatening, Hospitalization, Disabling, Other)
  Sender: FDA-Public Use
  Company Number: CN-ASTRAZENECA-2020SF19149

PATIENT
  Age: 58 Year
  Sex: Male

DRUGS (2)
  1. OSIMERTINIB MESYLATE. [Suspect]
     Active Substance: OSIMERTINIB MESYLATE
     Route: 048
     Dates: start: 20200121, end: 20200831
  2. OSIMERTINIB MESYLATE. [Suspect]
     Active Substance: OSIMERTINIB MESYLATE
     Route: 048

REACTIONS (5)
  - Nausea [Not Recovered/Not Resolved]
  - Cachexia [Not Recovered/Not Resolved]
  - Coma [Not Recovered/Not Resolved]
  - Diarrhoea [Not Recovered/Not Resolved]
  - Epilepsy [Not Recovered/Not Resolved]

NARRATIVE: CASE EVENT DATE: 20200831
